FAERS Safety Report 16684628 (Version 2)
Quarter: 2019Q3

REPORT INFORMATION
  Report Type: Spontaneous
  Country: RU (occurrence: RU)
  Receive Date: 20190808
  Receipt Date: 20190903
  Transmission Date: 20191004
  Serious: Yes (Other)
  Sender: FDA-Public Use
  Company Number: RU-BAYER-2019-143404

PATIENT
  Age: 17 Year

DRUGS (1)
  1. ANTIHEMOPHILIC FACTOR VIII (RECOMBINANT) [Suspect]
     Active Substance: ANTIHEMOPHILIC FACTOR, HUMAN RECOMBINANT
     Route: 065

REACTIONS (3)
  - Incorrect dose administered [Unknown]
  - Haemophilic pseudotumour [Recovered/Resolved]
  - Anti factor VIII antibody increased [Unknown]
